FAERS Safety Report 6627740-8 (Version None)
Quarter: 2010Q1

REPORT INFORMATION
  Report Type: 
  Country: None (occurrence: None)
  Receive Date: 20100311
  Receipt Date: 20100303
  Transmission Date: 20100710
  Serious: Yes (Other)
  Sender: FDA-Public Use
  Company Number: PHHY2009BR01887

PATIENT
  Sex: Female
  Weight: 55 kg

DRUGS (6)
  1. EXELON [Suspect]
     Indication: DEMENTIA ALZHEIMER'S TYPE
     Dosage: 9MG/5CM2, 1 PATCH/DAY
     Route: 062
     Dates: start: 20081101
  2. PANTOPRAZOLE [Concomitant]
     Indication: PAIN
     Dosage: 1 TABLET FOR 7 DAYS
  3. CALCIUM D SANDOZ [Concomitant]
     Dosage: 1 DF, QD
  4. ALENDRONATE SODIUM [Concomitant]
     Dosage: 70 MG, QW
  5. VASOPRIL PLUS [Concomitant]
     Dosage: 1 DF, QD, 1 TABLET PER DAY IN THE MORNING
  6. SINAR [Concomitant]
     Indication: EYE DISORDER
     Dosage: BEFORE EYE DROPS APPLICATION

REACTIONS (8)
  - APPLICATION SITE ERYTHEMA [None]
  - APPLICATION SITE HYPERSENSITIVITY [None]
  - APPLICATION SITE PRURITUS [None]
  - APPLICATION SITE REACTION [None]
  - APPLICATION SITE SWELLING [None]
  - CATARACT OPERATION [None]
  - RETINAL DETACHMENT [None]
  - TREATMENT NONCOMPLIANCE [None]
